FAERS Safety Report 10135419 (Version 1)
Quarter: 2014Q2

REPORT INFORMATION
  Report Type: Report from Study
  Country: IL (occurrence: IL)
  Receive Date: 20140428
  Receipt Date: 20140428
  Transmission Date: 20141212
  Serious: Yes (Hospitalization)
  Sender: FDA-Public Use
  Company Number: IL-ABBVIE-14P-082-1227254-00

PATIENT
  Sex: Male

DRUGS (2)
  1. HUMIRA [Suspect]
     Indication: CROHN^S DISEASE
     Route: 058
     Dates: start: 20130710
  2. HUMIRA [Suspect]
     Route: 058

REACTIONS (4)
  - Gastrointestinal inflammation [Unknown]
  - Crohn^s disease [Unknown]
  - Pyrexia [Unknown]
  - Pain [Unknown]
